FAERS Safety Report 24217116 (Version 1)
Quarter: 2024Q3

REPORT INFORMATION
  Report Type: Report from Study
  Country: US (occurrence: US)
  Receive Date: 20240816
  Receipt Date: 20240816
  Transmission Date: 20241017
  Serious: Yes (Other)
  Sender: ACADIA PHARMACEUTICALS
  Company Number: US-ACADIA PHARMACEUTICALS INC.-ACA-2024-PIM-004043

PATIENT
  Age: 73 Year
  Sex: Female

DRUGS (19)
  1. NUPLAZID [Suspect]
     Active Substance: PIMAVANSERIN TARTRATE
     Indication: Hallucination
     Dosage: 34 MILLIGRAM, QD
     Route: 048
     Dates: start: 20230908
  2. NUPLAZID [Suspect]
     Active Substance: PIMAVANSERIN TARTRATE
     Indication: Parkinson^s disease
  3. MIDODRINE [Concomitant]
     Active Substance: MIDODRINE
  4. CARBIDOPA\LEVODOPA [Concomitant]
     Active Substance: CARBIDOPA\LEVODOPA
  5. NAMENDA [Concomitant]
     Active Substance: MEMANTINE HYDROCHLORIDE
  6. ROPINIROLE [Concomitant]
     Active Substance: ROPINIROLE
  7. ZENPEP [Concomitant]
     Active Substance: PANCRELIPASE AMYLASE\PANCRELIPASE LIPASE\PANCRELIPASE PROTEASE
  8. ATORVASTATIN [Concomitant]
     Active Substance: ATORVASTATIN
  9. ASPIRIN [Concomitant]
     Active Substance: ASPIRIN
     Dosage: 81 MILLIGRAM
  10. VITAMIN D3 [Concomitant]
     Active Substance: CHOLECALCIFEROL
  11. TAMSULOSIN [Concomitant]
     Active Substance: TAMSULOSIN
  12. XANAX [Concomitant]
     Active Substance: ALPRAZOLAM
  13. JARDIANCE [Concomitant]
     Active Substance: EMPAGLIFLOZIN
  14. PRILOSEC [Concomitant]
     Active Substance: OMEPRAZOLE MAGNESIUM
  15. VITAMIN B6 [Concomitant]
     Active Substance: PYRIDOXINE HYDROCHLORIDE
  16. LASIX [Concomitant]
     Active Substance: FUROSEMIDE
  17. POTASSIUM [Concomitant]
     Active Substance: POTASSIUM
  18. IRON [Concomitant]
     Active Substance: IRON
  19. SUPERBEETS [BETA VULGARIS;VITIS VINIFERA] [Concomitant]

REACTIONS (3)
  - Lung neoplasm malignant [Not Recovered/Not Resolved]
  - Delusion [Not Recovered/Not Resolved]
  - Hallucination [Not Recovered/Not Resolved]

NARRATIVE: CASE EVENT DATE: 20240725
